FAERS Safety Report 6747068-5 (Version None)
Quarter: 2010Q2

REPORT INFORMATION
  Report Type: 
  Country: None (occurrence: None)
  Receive Date: 20100528
  Receipt Date: 20100518
  Transmission Date: 20101027
  Serious: Yes (Death, Hospitalization, Disabling, Other)
  Sender: FDA-Public Use
  Company Number: AU-PFIZER INC-2008020633

PATIENT
  Age: 60 Year
  Sex: Female
  Weight: 55 kg

DRUGS (2)
  1. SUNITINIB MALATE [Suspect]
     Indication: GASTROINTESTINAL STROMAL TUMOUR
     Dosage: DAILY
     Route: 048
     Dates: start: 20051121, end: 20080222
  2. LEVOTHYROXINE SODIUM [Concomitant]
     Route: 048
     Dates: start: 20071218

REACTIONS (3)
  - FATIGUE [None]
  - HEPATIC FAILURE [None]
  - SEPSIS [None]
